FAERS Safety Report 20479587 (Version 3)
Quarter: 2022Q2

REPORT INFORMATION
  Report Type: Spontaneous
  Country: US (occurrence: US)
  Receive Date: 20220216
  Receipt Date: 20220401
  Transmission Date: 20220721
  Serious: No
  Sender: FDA-Public Use
  Company Number: US-TEVA-2022-US-2005683

PATIENT
  Sex: Male

DRUGS (2)
  1. TRAZODONE HYDROCHLORIDE [Suspect]
     Active Substance: TRAZODONE HYDROCHLORIDE
     Indication: Depression
     Dosage: 200 MILLIGRAM DAILY; AT BEDTIME, FOR ABOUT 8 YEARS
     Route: 065
  2. TRAZODONE HYDROCHLORIDE [Suspect]
     Active Substance: TRAZODONE HYDROCHLORIDE
     Indication: Sleep disorder
     Dosage: REDUCE THE AMOUNT OF TRAZADONE
     Route: 065
     Dates: start: 2021

REACTIONS (6)
  - Poor quality sleep [Unknown]
  - Nightmare [Unknown]
  - Drug withdrawal syndrome [Unknown]
  - Product size issue [Unknown]
  - Drug ineffective [Unknown]
  - Product use issue [Unknown]
